FAERS Safety Report 14988318 (Version 2)
Quarter: 2018Q3

REPORT INFORMATION
  Report Type: Spontaneous
  Country: BR (occurrence: BR)
  Receive Date: 20180608
  Receipt Date: 20180703
  Transmission Date: 20181010
  Serious: Yes (Hospitalization)
  Sender: FDA-Public Use
  Company Number: BR-MYLANLABS-2018M1040118

PATIENT
  Sex: Male
  Weight: 72 kg

DRUGS (4)
  1. VENLAFAXINE [Concomitant]
     Active Substance: VENLAFAXINE HYDROCHLORIDE
     Indication: SCHIZOPHRENIA
     Dosage: 100 MG, UNK
     Route: 065
     Dates: start: 2018
  2. OLANZAPINE. [Concomitant]
     Active Substance: OLANZAPINE
     Indication: SCHIZOPHRENIA
     Dosage: 10 MG, UNK
     Route: 065
     Dates: start: 2018
  3. LEPONEX 25 MG [Suspect]
     Active Substance: CLOZAPINE
     Indication: SCHIZOPHRENIA
     Dosage: 0.5 DF, QD
     Route: 048
     Dates: start: 201708
  4. LEPONEX 25 MG [Suspect]
     Active Substance: CLOZAPINE
     Dosage: 25 MG, UNK
     Route: 048
     Dates: start: 201709, end: 201710

REACTIONS (3)
  - Schizophrenia [Recovering/Resolving]
  - Agranulocytosis [Recovered/Resolved]
  - Red blood cell count decreased [Not Recovered/Not Resolved]

NARRATIVE: CASE EVENT DATE: 2017
